FAERS Safety Report 15190453 (Version 2)
Quarter: 2020Q2

REPORT INFORMATION
  Report Type: Spontaneous
  Country: US (occurrence: US)
  Receive Date: 20180724
  Receipt Date: 20200608
  Transmission Date: 20200713
  Serious: Yes (Hospitalization, Other)
  Sender: FDA-Public Use
  Company Number: US-SA-2018SA200280

PATIENT

DRUGS (5)
  1. PRASUGREL. [Concomitant]
     Active Substance: PRASUGREL
     Dosage: 5 MG, HS
  2. PRALUENT [Suspect]
     Active Substance: ALIROCUMAB
     Indication: LOW DENSITY LIPOPROTEIN ABNORMAL
     Dosage: 75 MG, QOW
     Route: 058
  3. CARVEDILOL. [Concomitant]
     Active Substance: CARVEDILOL
     Dosage: 1 DF, BID
  4. PRALUENT [Suspect]
     Active Substance: ALIROCUMAB
     Indication: HYPERCHOLESTEROLAEMIA
     Dosage: 1 ML, QOW
     Route: 030
     Dates: start: 20160804
  5. LOSARTAN. [Concomitant]
     Active Substance: LOSARTAN
     Dosage: 1 DF, QD

REACTIONS (2)
  - Product use issue [Unknown]
  - Myocardial infarction [Unknown]

NARRATIVE: CASE EVENT DATE: 20160804
